FAERS Safety Report 13505386 (Version 7)
Quarter: 2019Q3

REPORT INFORMATION
  Report Type: Report from Study
  Country: US (occurrence: US)
  Receive Date: 20170502
  Receipt Date: 20190808
  Transmission Date: 20191004
  Serious: Yes (Hospitalization, Other)
  Sender: FDA-Public Use
  Company Number: US-ACTELION-A-NJ2017-153130

PATIENT
  Age: 68 Year
  Sex: Female
  Weight: 71.66 kg

DRUGS (14)
  1. NOVOLIN [Concomitant]
     Active Substance: INSULIN HUMAN
  2. SYNTHROID [Concomitant]
     Active Substance: LEVOTHYROXINE SODIUM
  3. NOVOLOG [Concomitant]
     Active Substance: INSULIN ASPART
  4. PRIMIDONE. [Concomitant]
     Active Substance: PRIMIDONE
  5. VITAMIN D [Concomitant]
     Active Substance: VITAMIN D NOS
  6. ARANESP [Concomitant]
     Active Substance: DARBEPOETIN ALFA
  7. TRACLEER [Suspect]
     Active Substance: BOSENTAN
     Indication: PULMONARY ARTERIAL HYPERTENSION
     Dosage: 125 MG, QD
     Route: 048
     Dates: start: 20110310
  8. PREDNISONE. [Concomitant]
     Active Substance: PREDNISONE
  9. TRACLEER [Suspect]
     Active Substance: BOSENTAN
     Dosage: 125 MG, BID
     Route: 048
  10. EPOGEN [Concomitant]
     Active Substance: ERYTHROPOIETIN
  11. NIFEDIPINE. [Concomitant]
     Active Substance: NIFEDIPINE
  12. HUMALOG [Concomitant]
     Active Substance: INSULIN LISPRO
  13. LASIX [Concomitant]
     Active Substance: FUROSEMIDE
  14. CALCIUM [Concomitant]
     Active Substance: CALCIUM

REACTIONS (15)
  - Respiration abnormal [Unknown]
  - Dizziness [Unknown]
  - Pneumonia [Recovered/Resolved]
  - Product dose omission [Recovered/Resolved]
  - Blood glucose decreased [Unknown]
  - Blood glucose increased [Unknown]
  - Hypotension [Unknown]
  - Nausea [Unknown]
  - Dyskinesia [Unknown]
  - Blood calcium increased [Unknown]
  - Contusion [Unknown]
  - Dyspnoea [Unknown]
  - Malaise [Unknown]
  - Type 1 diabetes mellitus [Unknown]
  - Fall [Unknown]

NARRATIVE: CASE EVENT DATE: 201802
